FAERS Safety Report 9218102 (Version 2)
Quarter: 2013Q2

REPORT INFORMATION
  Report Type: Spontaneous
  Country: GR (occurrence: GR)
  Receive Date: 20130408
  Receipt Date: 20130613
  Transmission Date: 20140414
  Serious: Yes (Other)
  Sender: FDA-Public Use
  Company Number: GR-GLAXOSMITHKLINE-B0880867A

PATIENT
  Age: 23 Year
  Sex: Female

DRUGS (3)
  1. LAMICTAL [Suspect]
     Indication: PERSONALITY DISORDER
     Dosage: 25MG PER DAY
     Route: 048
  2. ZYPREXA [Concomitant]
     Route: 065
  3. LADOSE [Concomitant]
     Indication: PERSONALITY DISORDER
     Dosage: 20MG TWICE PER DAY
     Route: 065

REACTIONS (2)
  - Suicidal ideation [Recovered/Resolved]
  - Alcoholism [Recovered/Resolved]
